FAERS Safety Report 13394272 (Version 2)
Quarter: 2017Q2

REPORT INFORMATION
  Report Type: Spontaneous
  Country: US (occurrence: US)
  Receive Date: 20170402
  Receipt Date: 20170407
  Transmission Date: 20170830
  Serious: Yes (Hospitalization)
  Sender: FDA-Public Use
  Company Number: US-UNITED THERAPEUTICS-UNT-2017-003303

PATIENT
  Age: 74 Year
  Sex: Female
  Weight: 57.6 kg

DRUGS (5)
  1. REMODULIN [Suspect]
     Active Substance: TREPROSTINIL
     Indication: PULMONARY HYPERTENSION
     Dosage: 0.003 ?G/KG, CONTINUING
     Route: 058
     Dates: start: 20170214
  2. AMLODIPINE [Concomitant]
     Active Substance: AMLODIPINE BESYLATE
     Indication: PRODUCT USED FOR UNKNOWN INDICATION
  3. REMODULIN [Suspect]
     Active Substance: TREPROSTINIL
     Dosage: 0.002 ?G/KG, CONTINUING
     Route: 058
  4. LETAIRIS [Suspect]
     Active Substance: AMBRISENTAN
     Indication: PRODUCT USED FOR UNKNOWN INDICATION
     Dosage: 10 MG, QD
     Route: 065
  5. ADCIRCA [Concomitant]
     Active Substance: TADALAFIL
     Indication: PRODUCT USED FOR UNKNOWN INDICATION

REACTIONS (14)
  - Dyspnoea [Unknown]
  - Tinnitus [Unknown]
  - Hypotension [Unknown]
  - Oedema peripheral [Unknown]
  - Oxygen consumption increased [Unknown]
  - Diarrhoea [Unknown]
  - Infusion site erythema [Unknown]
  - Infusion site pain [Unknown]
  - Headache [Not Recovered/Not Resolved]
  - Infusion site irritation [Unknown]
  - Musculoskeletal pain [Unknown]
  - Nasal congestion [Unknown]
  - Weight increased [Unknown]
  - Infusion site warmth [Unknown]

NARRATIVE: CASE EVENT DATE: 201703
